FAERS Safety Report 6599765-2 (Version None)
Quarter: 2010Q1

REPORT INFORMATION
  Report Type: 
  Country: None (occurrence: None)
  Receive Date: 20100217
  Receipt Date: 20100205
  Transmission Date: 20100710
  Serious: Yes (Hospitalization)
  Sender: FDA-Public Use
  Company Number: 499068

PATIENT
  Age: 68 Year
  Sex: Female

DRUGS (8)
  1. CYTARABINE [Suspect]
     Indication: ACUTE MYELOID LEUKAEMIA
     Dosage: 20 MG/M2 (DAYS 1-10 EVERY 28 DAYS),; 20 MG/M2 (DAYS 1-10 EVERY 28 DAYS), INTRAVENOUS
     Route: 042
     Dates: start: 20070212, end: 20070322
  2. LANSOPRAZOLE [Concomitant]
  3. (OFLOCET /00731801/) [Concomitant]
  4. AUGMENTIN '125' [Concomitant]
  5. (LEVOTHYROX) [Concomitant]
  6. (BROMAZEPAM) [Concomitant]
  7. (STILNOX /00914901/) [Concomitant]
  8. OMEPRAZOLE [Concomitant]

REACTIONS (7)
  - ANAEMIA [None]
  - DIPLOPIA [None]
  - FEBRILE NEUTROPENIA [None]
  - HYPOTENSION [None]
  - ODYNOPHAGIA [None]
  - RALES [None]
  - THROMBOCYTOPENIA [None]
